FAERS Safety Report 9169119 (Version 1)
Quarter: 2013Q1

REPORT INFORMATION
  Report Type: Spontaneous
  Country: GB (occurrence: GB)
  Receive Date: 20130318
  Receipt Date: 20130318
  Transmission Date: 20140127
  Serious: Yes (Other)
  Sender: FDA-Public Use
  Company Number: GB-TEVA-390931ISR

PATIENT
  Age: 45 Year
  Sex: Female

DRUGS (6)
  1. DIAZEPAM [Suspect]
     Dosage: DOSE NOT STATED
     Route: 065
  2. HALOPERIDOL [Suspect]
     Dosage: DOSE NOT STATED
     Route: 065
  3. DROLEPTAN [Suspect]
     Dosage: DOSE NOT STATED
     Route: 065
  4. DEPIXOL [Suspect]
     Dosage: DOSE NOT STATED
     Route: 065
  5. VALIUM [Suspect]
     Dosage: DOSE NOT STATED
     Route: 065
  6. SPARINE [Suspect]
     Dosage: DOSE NOT STATED
     Route: 065

REACTIONS (5)
  - Suicide attempt [Unknown]
  - Victim of child abuse [Unknown]
  - Self injurious behaviour [Unknown]
  - Intentional drug misuse [Unknown]
  - Overdose [Unknown]
